FAERS Safety Report 7937968-2 (Version None)
Quarter: 2011Q4

REPORT INFORMATION
  Report Type: 
  Country: None (occurrence: None)
  Receive Date: 20111123
  Receipt Date: 20111118
  Transmission Date: 20120403
  Serious: Yes (Hospitalization, Disabling)
  Sender: FDA-Public Use
  Company Number: US-B.I. PHARMACEUTICALS,INC./RIDGEFIELD-2011-BP-24222BP

PATIENT
  Age: 75 Year
  Sex: Male

DRUGS (9)
  1. CALCITRIOL [Concomitant]
  2. AMLODIPINE [Concomitant]
  3. FISH OIL [Concomitant]
  4. CARVEDILOL [Concomitant]
  5. PRADAXA [Suspect]
     Indication: ATRIAL FIBRILLATION
     Dosage: 150 MG
     Route: 048
     Dates: start: 20110501, end: 20110801
  6. DIOVAN [Concomitant]
  7. SIMVASTATIN [Concomitant]
  8. OSTEO BIFLEX [Concomitant]
  9. MULTI-VITAMIN [Concomitant]

REACTIONS (4)
  - INTERNATIONAL NORMALISED RATIO INCREASED [None]
  - HAEMOGLOBIN DECREASED [None]
  - GASTROINTESTINAL HAEMORRHAGE [None]
  - RENAL IMPAIRMENT [None]
